FAERS Safety Report 12453072 (Version 2)
Quarter: 2019Q2

REPORT INFORMATION
  Report Type: Spontaneous
  Country: US (occurrence: US)
  Receive Date: 20160609
  Receipt Date: 20190605
  Transmission Date: 20190711
  Serious: No
  Sender: FDA-Public Use
  Company Number: US-LUNDBECK-DKLU2013479

PATIENT
  Age: 56 Year
  Sex: Male

DRUGS (2)
  1. NORTHERA [Suspect]
     Active Substance: DROXIDOPA
     Dosage: PRN
     Route: 048
  2. NORTHERA [Suspect]
     Active Substance: DROXIDOPA
     Indication: ORTHOSTATIC HYPOTENSION
     Dosage: TITRATION, OVERDOSE: 2700MG
     Route: 065

REACTIONS (4)
  - Hypertension [Unknown]
  - Hypotension [Unknown]
  - Heart rate decreased [Unknown]
  - Overdose [Unknown]

NARRATIVE: CASE EVENT DATE: 201604
